FAERS Safety Report 9554188 (Version 1)
Quarter: 2013Q3

REPORT INFORMATION
  Report Type: Spontaneous
  Country: SE (occurrence: SE)
  Receive Date: 20130925
  Receipt Date: 20130925
  Transmission Date: 20140515
  Serious: Yes (Other)
  Sender: FDA-Public Use
  Company Number: PHHY2013SE105870

PATIENT
  Sex: Female

DRUGS (1)
  1. GILENYA [Suspect]
     Dates: start: 20130219

REACTIONS (3)
  - Maculopathy [Unknown]
  - Visual impairment [Unknown]
  - Ocular discomfort [Unknown]
